FAERS Safety Report 4508000-8 (Version None)
Quarter: 2004Q4

REPORT INFORMATION
  Report Type: 
  Country: None (occurrence: None)
  Receive Date: 20041123
  Receipt Date: 20020807
  Transmission Date: 20050328
  Serious: Yes (Life-Threatening, Hospitalization)
  Sender: FDA-Public Use
  Company Number: JP-MERCK-0208USA02070

PATIENT
  Age: 12 Year
  Sex: Female
  Weight: 32 kg

DRUGS (10)
  1. FOSAMAX [Suspect]
     Indication: OSTEOPOROSIS
     Route: 048
     Dates: start: 20020617, end: 20020630
  2. FOSAMAX [Suspect]
     Route: 048
     Dates: start: 20020701, end: 20020726
  3. PREDNISOLONE [Concomitant]
     Indication: JUVENILE ARTHRITIS
     Route: 065
     Dates: start: 20020127, end: 20020610
  4. PREDNISOLONE [Concomitant]
     Route: 065
     Dates: start: 20020611, end: 20020730
  5. PREDNISOLONE [Concomitant]
     Route: 065
     Dates: start: 20011019, end: 20020126
  6. PREDNISOLONE [Concomitant]
     Route: 065
     Dates: start: 19960101
  7. IBUPROFEN [Concomitant]
     Indication: JUVENILE ARTHRITIS
     Route: 065
     Dates: start: 20000107, end: 20020730
  8. MIZORIBINE [Concomitant]
     Indication: JUVENILE ARTHRITIS
     Route: 065
     Dates: start: 20000107, end: 20020730
  9. GLYCYRON [Concomitant]
     Route: 048
     Dates: start: 20000107, end: 20020730
  10. ALFACALCIDOL [Concomitant]
     Indication: OSTEOPOROSIS
     Route: 065
     Dates: start: 20000107, end: 20020616

REACTIONS (6)
  - EOSINOPHIL COUNT INCREASED [None]
  - GALLBLADDER DISORDER [None]
  - HEPATITIS ACUTE [None]
  - HEPATOMEGALY [None]
  - SOMNOLENCE [None]
  - SPLENOMEGALY [None]
